FAERS Safety Report 12345822 (Version 1)
Quarter: 2016Q2

REPORT INFORMATION
  Report Type: Spontaneous
  Country: IT (occurrence: IT)
  Receive Date: 20160509
  Receipt Date: 20160509
  Transmission Date: 20160815
  Serious: Yes (Other)
  Sender: FDA-Public Use
  Company Number: IT-ACCORD-040329

PATIENT
  Age: 35 Year
  Sex: Female

DRUGS (6)
  1. MEDROL [Concomitant]
     Active Substance: METHYLPREDNISOLONE
  2. NAPROXEN. [Concomitant]
     Active Substance: NAPROXEN
  3. METHOTREXATE [Suspect]
     Active Substance: METHOTREXATE
     Indication: JUVENILE IDIOPATHIC ARTHRITIS
     Route: 058
     Dates: start: 20151203, end: 20160109
  4. DIBASE [Concomitant]
     Active Substance: CHOLECALCIFEROL
  5. PANTOPRAZOLE [Concomitant]
     Active Substance: PANTOPRAZOLE SODIUM
  6. FOLINA [Concomitant]
     Active Substance: FOLIC ACID

REACTIONS (4)
  - Pyrexia [Recovered/Resolved]
  - Off label use [Unknown]
  - Aphonia [Recovered/Resolved]
  - Nausea [Recovered/Resolved]

NARRATIVE: CASE EVENT DATE: 20160109
